FAERS Safety Report 17880745 (Version 3)
Quarter: 2020Q3

REPORT INFORMATION
  Report Type: Spontaneous
  Country: BG (occurrence: BG)
  Receive Date: 20200610
  Receipt Date: 20200722
  Transmission Date: 20201103
  Serious: Yes (Hospitalization)
  Sender: FDA-Public Use
  Company Number: BG-ROCHE-2618258

PATIENT
  Age: 66 Year
  Sex: Male

DRUGS (7)
  1. ROACTEMRA [Suspect]
     Active Substance: TOCILIZUMAB
     Indication: RHEUMATOID ARTHRITIS
     Dosage: ON AN UNKNOWN DATE, ENDOSCOPY SHOWED POSITIVE DIAGNOSIS FOR ULCERATIVE COLITIS.
     Route: 058
     Dates: start: 201808
  2. SALOFALK (MESALAZINE) [Suspect]
     Active Substance: MESALAMINE
     Indication: PRODUCT USED FOR UNKNOWN INDICATION
     Dosage: 3X2 TABLET
     Route: 065
  3. ROSUVASTATIN. [Concomitant]
     Active Substance: ROSUVASTATIN
  4. ROACTEMRA [Suspect]
     Active Substance: TOCILIZUMAB
     Route: 058
  5. ROACTEMRA [Suspect]
     Active Substance: TOCILIZUMAB
     Route: 058
  6. ENALAPRIL [Concomitant]
     Active Substance: ENALAPRIL
  7. ROACTEMRA [Suspect]
     Active Substance: TOCILIZUMAB
     Route: 058

REACTIONS (3)
  - Colitis ulcerative [Recovering/Resolving]
  - Haematochezia [Recovering/Resolving]
  - Mucous stools [Recovering/Resolving]

NARRATIVE: CASE EVENT DATE: 202004
